FAERS Safety Report 20405852 (Version 1)
Quarter: 2022Q1

REPORT INFORMATION
  Report Type: Spontaneous
  Country: US (occurrence: US)
  Receive Date: 20220131
  Receipt Date: 20220131
  Transmission Date: 20220423
  Serious: Yes (Hospitalization)
  Sender: FDA-Public Use
  Company Number: US-GW PHARMA-202201USGW00317

PATIENT
  Age: 9 Year
  Sex: Male

DRUGS (1)
  1. EPIDIOLEX [Suspect]
     Active Substance: CANNABIDIOL
     Indication: Seizure
     Dosage: 200 MILLIGRAM, BID  (FIRST SHIPPED ON 29 APR 2019)
     Route: 048
     Dates: start: 2019

REACTIONS (4)
  - COVID-19 [Unknown]
  - Cough [Unknown]
  - Pyrexia [Unknown]
  - Seizure [Unknown]

NARRATIVE: CASE EVENT DATE: 20220119
